FAERS Safety Report 4497888-5 (Version None)
Quarter: 2004Q4

REPORT INFORMATION
  Report Type: 
  Country: None (occurrence: None)
  Receive Date: 20041104
  Receipt Date: 20041021
  Transmission Date: 20050328
  Serious: Yes (Other)
  Sender: FDA-Public Use
  Company Number: 2004236540AU

PATIENT
  Age: 62 Year
  Sex: Female
  Weight: 61 kg

DRUGS (3)
  1. CELEBREX [Suspect]
     Indication: TENDON DISORDER
     Dosage: 200 MG, ORAL
     Route: 048
     Dates: start: 20040919, end: 20040919
  2. NAPROSYN [Concomitant]
  3. GLUCOSAMINE [Concomitant]

REACTIONS (9)
  - DRUG INEFFECTIVE [None]
  - ERYTHEMA [None]
  - EYE SWELLING [None]
  - EYELID OEDEMA [None]
  - JAW DISORDER [None]
  - LOCAL SWELLING [None]
  - PRURITUS [None]
  - SUBCUTANEOUS NODULE [None]
  - SWELLING FACE [None]
